FAERS Safety Report 18172320 (Version 1)
Quarter: 2020Q3

REPORT INFORMATION
  Report Type: Spontaneous
  Country: GB (occurrence: GB)
  Receive Date: 20200820
  Receipt Date: 20200820
  Transmission Date: 20201103
  Serious: Yes (Other)
  Sender: FDA-Public Use
  Company Number: GB-ACCORD-196556

PATIENT
  Age: 88 Year
  Sex: Male

DRUGS (6)
  1. LISINOPRIL. [Concomitant]
     Active Substance: LISINOPRIL
  2. CARBOPLATIN. [Suspect]
     Active Substance: CARBOPLATIN
     Indication: PELVIC MASS
  3. LEUPRORELIN/LEUPRORELIN ACETATE [Concomitant]
     Active Substance: LEUPROLIDE ACETATE
  4. ETOPOSIDE. [Concomitant]
     Active Substance: ETOPOSIDE
  5. AMLODIPINE [Concomitant]
     Active Substance: AMLODIPINE BESYLATE
  6. ALLOPURINOL. [Concomitant]
     Active Substance: ALLOPURINOL

REACTIONS (4)
  - Pulmonary embolism [Unknown]
  - Lymphadenopathy [Unknown]
  - Hydronephrosis [Unknown]
  - Off label use [Unknown]
